FAERS Safety Report 20327857 (Version 1)
Quarter: 2022Q1

REPORT INFORMATION
  Report Type: Other
  Country: CN (occurrence: CN)
  Receive Date: 20220112
  Receipt Date: 20220112
  Transmission Date: 20220423
  Serious: Yes (Other)
  Sender: FDA-Public Use
  Company Number: CN-002147023-NVSC2021CN220684

PATIENT
  Age: 73 Year
  Sex: Male

DRUGS (9)
  1. RANIBIZUMAB [Suspect]
     Active Substance: RANIBIZUMAB
     Indication: Neovascular age-related macular degeneration
     Route: 065
     Dates: start: 20200828
  2. AZOPT [Concomitant]
     Active Substance: BRINZOLAMIDE
     Indication: Neovascular age-related macular degeneration
     Dosage: 50 MG (DRIPPING TO BOTH EYES)
     Route: 065
     Dates: start: 20201203, end: 20201203
  3. AZOPT [Concomitant]
     Active Substance: BRINZOLAMIDE
     Indication: Iridotomy
     Dosage: 50 MG (DRIPPING TO BOTH EYES)
     Route: 065
     Dates: start: 20201203, end: 20201204
  4. AZOPT [Concomitant]
     Active Substance: BRINZOLAMIDE
     Dosage: 50 MG  (DRIPPING TO BOTH EYES) (ROUTE: APPLIED TO LEFT EYE)
     Route: 065
     Dates: start: 20201204, end: 20201207
  5. MANNITOL [Concomitant]
     Active Substance: MANNITOL
     Indication: Neovascular age-related macular degeneration
     Dosage: 250 ML
     Route: 042
     Dates: start: 20201203, end: 20201203
  6. MANNITOL [Concomitant]
     Active Substance: MANNITOL
     Indication: Iridotomy
  7. CARTEOLOL HYDROCHLORIDE [Concomitant]
     Active Substance: CARTEOLOL HYDROCHLORIDE
     Indication: Neovascular age-related macular degeneration
     Dosage: 5 ML (ROUTE: APPLIED TO BOTH EYES)
     Route: 065
     Dates: start: 20201203, end: 20201203
  8. CARTEOLOL HYDROCHLORIDE [Concomitant]
     Active Substance: CARTEOLOL HYDROCHLORIDE
     Indication: Iridotomy
     Dosage: 5 ML (DRIPPING TO BOTH EYES)
     Route: 065
     Dates: start: 20201203, end: 20201204
  9. CARTEOLOL HYDROCHLORIDE [Concomitant]
     Active Substance: CARTEOLOL HYDROCHLORIDE
     Dosage: 5 ML (DRIPPING TO BOTH EYES)
     Route: 065
     Dates: start: 20201204, end: 20201208

REACTIONS (4)
  - Cataract [Not Recovered/Not Resolved]
  - Angle closure glaucoma [Recovered/Resolved]
  - Corneal disorder [Recovered/Resolved]
  - Injection site haemorrhage [Recovered/Resolved]

NARRATIVE: CASE EVENT DATE: 20200828
